FAERS Safety Report 7071761-0 (Version None)
Quarter: 2010Q4

REPORT INFORMATION
  Report Type: 
  Country: None (occurrence: None)
  Receive Date: 20101029
  Receipt Date: 20091130
  Transmission Date: 20110411
  Serious: No
  Sender: FDA-Public Use
  Company Number: A0812213A

PATIENT
  Age: 69 Year
  Sex: Female

DRUGS (9)
  1. ADVAIR DISKUS 100/50 [Suspect]
     Indication: CHRONIC OBSTRUCTIVE PULMONARY DISEASE
     Dosage: 1PUFF TWICE PER DAY
     Route: 055
     Dates: start: 20010101
  2. ZOLOFT [Concomitant]
  3. SPIRIVA [Concomitant]
  4. OXYGEN [Concomitant]
  5. BENAZAPRIL [Concomitant]
  6. FUROSEMIDE [Concomitant]
  7. VITAMIN E [Concomitant]
  8. POTASSIUM CHLORIDE [Concomitant]
  9. PROAIR HFA [Concomitant]

REACTIONS (4)
  - COUGH [None]
  - DIPLOPIA [None]
  - OROPHARYNGEAL PAIN [None]
  - PRODUCT QUALITY ISSUE [None]
